FAERS Safety Report 10751647 (Version 4)
Quarter: 2015Q1

REPORT INFORMATION
  Report Type: Report from Study
  Country: US (occurrence: US)
  Receive Date: 20150130
  Receipt Date: 20150216
  Transmission Date: 20150721
  Serious: Yes (Life-Threatening, Hospitalization, Other)
  Sender: FDA-Public Use
  Company Number: US-NOVOPROD-435949

PATIENT
  Age: 67 Year
  Sex: Male
  Weight: 137.4 kg

DRUGS (17)
  1. BLINDED NO DRUG GIVEN [Suspect]
     Active Substance: UNSPECIFIED INGREDIENT
     Indication: TYPE 2 DIABETES MELLITUS
     Dosage: 138.0,,QD
     Route: 058
     Dates: start: 20140731, end: 20150116
  2. LOSARTAN [Concomitant]
     Active Substance: LOSARTAN
     Dates: start: 2004, end: 20150117
  3. NOVORAPID [Suspect]
     Active Substance: INSULIN ASPART
     Indication: TYPE 2 DIABETES MELLITUS
     Dosage: 138.0,,QD
     Route: 058
     Dates: start: 20140731, end: 20150116
  4. AMLODIPINE [Concomitant]
     Active Substance: AMLODIPINE BESYLATE
     Dates: start: 20150118
  5. LANTUS [Suspect]
     Active Substance: INSULIN GLARGINE
     Indication: TYPE 2 DIABETES MELLITUS
     Dosage: 138.0,,QD
     Route: 058
     Dates: start: 20140731, end: 20150116
  6. BLINDED UNKNOWN [Suspect]
     Active Substance: UNSPECIFIED INGREDIENT
     Dosage: AT DECREASED DOSE
     Dates: start: 20150201
  7. BUMETANIDE. [Concomitant]
     Active Substance: BUMETANIDE
     Dates: start: 20150127
  8. BLINDED IDEG 100U VIAL [Suspect]
     Active Substance: INSULIN DEGLUDEC
     Dosage: AT DECREASED DOSE
     Dates: start: 20150201
  9. BLINDED UNKNOWN [Suspect]
     Active Substance: UNSPECIFIED INGREDIENT
     Indication: TYPE 2 DIABETES MELLITUS
     Dosage: 138.0,,QD
     Route: 058
     Dates: start: 20140731, end: 20150116
  10. LANTUS [Suspect]
     Active Substance: INSULIN GLARGINE
     Dosage: AT DECREASED DOSE
     Dates: start: 20150201
  11. BLINDED NO DRUG GIVEN [Suspect]
     Active Substance: UNSPECIFIED INGREDIENT
     Dosage: AT DECREASED DOSE
     Dates: start: 20150201
  12. NOVORAPID [Suspect]
     Active Substance: INSULIN ASPART
     Dosage: AT DECREASED DOSE
     Dates: start: 20150201
  13. NOVORAPID [Suspect]
     Active Substance: INSULIN ASPART
     Dosage: AT DECREASED DOSE
     Dates: start: 20150201
  14. BLINDED IDEG 100U VIAL [Suspect]
     Active Substance: INSULIN DEGLUDEC
     Indication: TYPE 2 DIABETES MELLITUS
     Dosage: 138.0,,QD
     Route: 058
     Dates: start: 20140731, end: 20150116
  15. NOVORAPID [Suspect]
     Active Substance: INSULIN ASPART
     Indication: TYPE 2 DIABETES MELLITUS
     Dosage: 294.0 U, QD
     Route: 058
     Dates: start: 20140731, end: 20150117
  16. METFORMIN [Concomitant]
     Active Substance: METFORMIN HYDROCHLORIDE
     Dates: start: 20141029, end: 20150117
  17. NIACIN. [Concomitant]
     Active Substance: NIACIN
     Dates: start: 201406, end: 20150117

REACTIONS (2)
  - Acute kidney injury [Recovered/Resolved]
  - Acute myocardial infarction [Recovered/Resolved]

NARRATIVE: CASE EVENT DATE: 20150117
